FAERS Safety Report 5269437-5 (Version None)
Quarter: 2007Q1

REPORT INFORMATION
  Report Type: 
  Country: None (occurrence: None)
  Receive Date: 20070316
  Receipt Date: 20070316
  Transmission Date: 20070707
  Serious: Yes (Hospitalization)
  Sender: FDA-Public Use
  Company Number: None

PATIENT
  Age: 44 Year
  Sex: Female
  Weight: 71.2147 kg

DRUGS (2)
  1. ANTIOXIDANT/MULTIV MULTIPLE VITAMINS AND HERBS [Suspect]
     Indication: WEIGHT DECREASED
     Dosage: 1 PACKET DAILY PO
     Route: 048
     Dates: start: 20070110, end: 20070115
  2. BURN METABOLISM BOOSTER MULTIPLE VITAMINS AND HERBS [Suspect]
     Dosage: 1 PILL

REACTIONS (9)
  - AMNESIA [None]
  - ASTHENIA [None]
  - CONFUSIONAL STATE [None]
  - ELECTROLYTE IMBALANCE [None]
  - FATIGUE [None]
  - HAEMODYNAMIC INSTABILITY [None]
  - HEADACHE [None]
  - THERAPEUTIC PRODUCT CONTAMINATION [None]
  - TREMOR [None]
